FAERS Safety Report 4379978-0 (Version None)
Quarter: 2004Q2

REPORT INFORMATION
  Report Type: 
  Country: None (occurrence: None)
  Receive Date: 20040614
  Receipt Date: 20040602
  Transmission Date: 20050107
  Serious: Yes (Death, Hospitalization)
  Sender: FDA-Public Use
  Company Number: ZANA001216

PATIENT
  Age: 6 Year
  Sex: Male
  Weight: 12.6 kg

DRUGS (10)
  1. TIZANIDINE HCL [Suspect]
     Indication: CEREBRAL PALSY
     Dosage: 1.2 MG DAILY ORAL
     Route: 048
  2. VALPROATE SODIUM [Concomitant]
  3. DEPAS (ETIZOLAM) [Concomitant]
  4. THEO-DUR [Concomitant]
  5. PHENOBARBITAL TAB [Concomitant]
  6. GABALON (BACLOFEN) [Concomitant]
  7. PROCATEROL HCL [Concomitant]
  8. MUCODYNE (CARBOCISTEINE) [Concomitant]
  9. TRICLORYL (TRICLOFOS SODIUM) [Concomitant]
  10. RACOL (RACOL) [Concomitant]

REACTIONS (12)
  - ABDOMINAL DISTENSION [None]
  - ANURIA [None]
  - BLOOD URIC ACID INCREASED [None]
  - BRONCHITIS [None]
  - CARDIO-RESPIRATORY ARREST [None]
  - CARDIOVASCULAR DISORDER [None]
  - DEHYDRATION [None]
  - EYE REDNESS [None]
  - GENERAL PHYSICAL CONDITION ABNORMAL [None]
  - INSOMNIA [None]
  - MUSCULOSKELETAL STIFFNESS [None]
  - OCULOGYRATION [None]
